FAERS Safety Report 23756985 (Version 6)
Quarter: 2024Q2

REPORT INFORMATION
  Report Type: Report from Study
  Country: US (occurrence: US)
  Receive Date: 20240418
  Receipt Date: 20240610
  Transmission Date: 20240716
  Serious: Yes (Other)
  Sender: FDA-Public Use
  Company Number: US-IPSEN Group, Research and Development-2024-05249

PATIENT
  Age: 73 Year
  Sex: Female

DRUGS (4)
  1. SOMATULINE DEPOT [Suspect]
     Active Substance: LANREOTIDE ACETATE
     Indication: Acromegaly
     Dosage: INJECTION (DEEP SUBCUTANEOUS)
     Route: 058
     Dates: start: 20240226
  2. SOMATULINE DEPOT [Suspect]
     Active Substance: LANREOTIDE ACETATE
     Dosage: INJECTION (DEEP SQ)
     Route: 058
     Dates: start: 20240326
  3. SOMATULINE DEPOT [Suspect]
     Active Substance: LANREOTIDE ACETATE
     Dosage: INJECTION (DEEP SQ)
     Route: 058
     Dates: start: 20240401
  4. SOMATULINE DEPOT [Suspect]
     Active Substance: LANREOTIDE ACETATE
     Dosage: INJECTION (DEEP SQ)
     Route: 058

REACTIONS (7)
  - Heart rate decreased [Recovering/Resolving]
  - Blood pressure increased [Recovered/Resolved]
  - Feeling abnormal [Recovering/Resolving]
  - Hypotension [Unknown]
  - Constipation [Not Recovered/Not Resolved]
  - Diarrhoea [Unknown]
  - Faeces pale [Unknown]

NARRATIVE: CASE EVENT DATE: 20240226
